FAERS Safety Report 7404370-1 (Version None)
Quarter: 2011Q2

REPORT INFORMATION
  Report Type: 
  Country: None (occurrence: None)
  Receive Date: 20110408
  Receipt Date: 20110324
  Transmission Date: 20111010
  Serious: Yes (Death)
  Sender: FDA-Public Use
  Company Number: US-BAYER-201035948NA

PATIENT
  Sex: Female
  Weight: 108.39 kg

DRUGS (33)
  1. GADOLINIUM IN UNSPECIFIED DRUG [Suspect]
     Indication: IMAGING PROCEDURE
     Dosage: UNK
     Dates: start: 20020215, end: 20020215
  2. FERROUS SULFATE TAB [Concomitant]
     Dosage: 300 MG, QD
     Route: 048
  3. NEPHRO-VITE [VITAMINS NOS] [Concomitant]
     Dosage: 1 DF, QD
     Route: 048
  4. NPH INSULIN [Concomitant]
     Indication: DIABETES MELLITUS
     Dosage: 20 UNITS Q AM, 15 UNITS Q PM
     Route: 058
  5. NPH INSULIN [Concomitant]
     Dosage: 15 UNK, QD IN PM
     Route: 058
  6. ASCORBIC ACID [Concomitant]
  7. FENTANYL [Concomitant]
     Indication: WOUND COMPLICATION
     Dosage: 100 MCG/HOUR, CHANGE EVERY 3 DAYS
     Route: 061
  8. GADOLINIUM IN UNSPECIFIED DRUG [Suspect]
     Dosage: UNK
     Dates: start: 20040310, end: 20040310
  9. OPTIMARK [Suspect]
     Indication: IMAGING PROCEDURE
  10. PREDNISONE [Concomitant]
     Route: 048
  11. MIDODRINE HYDROCHLORIDE [Concomitant]
     Dosage: 10 MG, QID
     Route: 048
  12. LINEZOLID [Concomitant]
     Dosage: 600 MG, BID
     Route: 042
  13. OMNISCAN [Suspect]
     Dosage: 20 ML, ONCE
     Route: 042
     Dates: start: 20030815, end: 20030815
  14. NEURONTIN [Concomitant]
     Indication: NEURALGIA
     Dosage: 300 MG, QOD
     Route: 048
  15. NIFEREX [POLYSACCHARIDE-IRON COMPLEX] [Concomitant]
  16. CALCITRIOL [Concomitant]
     Dosage: 0.25 ?G, QD
     Route: 048
  17. LORAZEPAM [Concomitant]
     Dosage: 1 MG
     Route: 042
  18. OMNISCAN [Suspect]
     Dosage: 30 ML, ONCE
     Route: 042
     Dates: start: 20040205, end: 20040205
  19. NEXIUM [Concomitant]
     Dosage: 40 MG, QD
     Route: 048
  20. PANCRELIPASE [Concomitant]
     Dosage: 2 DOSE TABLET BEFORE MEALS
     Route: 048
  21. OMNISCAN [Suspect]
     Indication: IMAGING PROCEDURE
     Dosage: 40 ML, ONCE
     Route: 042
     Dates: start: 20020215, end: 20020215
  22. OMNISCAN [Suspect]
     Dosage: UNK
     Route: 042
     Dates: start: 20030924, end: 20030924
  23. MAGNEVIST [Suspect]
     Indication: IMAGING PROCEDURE
     Dosage: UNK
     Dates: start: 20030908, end: 20030908
  24. OMNISCAN [Suspect]
     Dosage: UNK
     Route: 042
     Dates: start: 20031030, end: 20031030
  25. ATIVAN [Concomitant]
     Indication: ANXIETY
     Dosage: 1 MG, BID
     Route: 048
  26. RENAGEL [Concomitant]
     Dosage: 400 MG, WITH MEALS
  27. ASPIRIN [Concomitant]
     Dosage: 325 MG, QD
     Route: 048
  28. CYTOMEL [Concomitant]
     Dosage: 50 ?G, QD
     Route: 048
  29. AMBIEN [Concomitant]
     Indication: INSOMNIA
     Dosage: 5 MG, HS
     Route: 048
  30. EPOGEN [Concomitant]
     Dosage: 15000 U, TIW
     Route: 058
  31. PROTONIX [Concomitant]
     Dosage: 40 MG, QD
     Route: 048
  32. DILAUDID [Concomitant]
     Route: 042
  33. AMIKACIN [Concomitant]
     Dosage: 1200 MG
     Route: 042

REACTIONS (22)
  - NEPHROGENIC SYSTEMIC FIBROSIS [None]
  - FIBROSIS [None]
  - GENERAL PHYSICAL HEALTH DETERIORATION [None]
  - PARAKERATOSIS [None]
  - SKIN INDURATION [None]
  - OPEN WOUND [None]
  - PRURITUS [None]
  - SKIN DISCOLOURATION [None]
  - PAIN [None]
  - JOINT CONTRACTURE [None]
  - EXTREMITY CONTRACTURE [None]
  - LEG AMPUTATION [None]
  - PAIN IN EXTREMITY [None]
  - SKIN BURNING SENSATION [None]
  - DEFORMITY [None]
  - HYPERKERATOSIS [None]
  - SKIN LESION [None]
  - MUSCLE CONTRACTURE [None]
  - ULCER [None]
  - OEDEMA PERIPHERAL [None]
  - SKIN HYPERTROPHY [None]
  - SKIN FIBROSIS [None]
